FAERS Safety Report 9891997 (Version 1)
Quarter: 2014Q1

REPORT INFORMATION
  Report Type: Spontaneous
  Country: US (occurrence: US)
  Receive Date: 20140212
  Receipt Date: 20140212
  Transmission Date: 20141002
  Serious: Yes (Other)
  Sender: FDA-Public Use
  Company Number: US-JNJFOC-20140203310

PATIENT
  Sex: 0

DRUGS (2)
  1. XARELTO [Suspect]
     Indication: PULMONARY EMBOLISM
     Dosage: STARTED IN THE MONTH OF SEP (UNSPECIFIED YEAR)
     Route: 048
  2. XARELTO [Suspect]
     Indication: DEEP VEIN THROMBOSIS
     Dosage: STARTED IN THE MONTH OF SEP (UNSPECIFIED YEAR)
     Route: 048

REACTIONS (2)
  - Deep vein thrombosis [Unknown]
  - Coagulation test abnormal [Unknown]
